FAERS Safety Report 15149151 (Version 2)
Quarter: 2018Q4

REPORT INFORMATION
  Report Type: Spontaneous
  Country: US (occurrence: US)
  Receive Date: 20180716
  Receipt Date: 20181112
  Transmission Date: 20190204
  Serious: Yes (Other)
  Sender: FDA-Public Use
  Company Number: US-OTSUKA-2018_016332

PATIENT
  Sex: Male

DRUGS (3)
  1. ABILIFY [Suspect]
     Active Substance: ARIPIPRAZOLE
     Indication: BIPOLAR DISORDER
     Dosage: 20 MG, QD
     Route: 065
  2. ABILIFY [Suspect]
     Active Substance: ARIPIPRAZOLE
     Indication: MAJOR DEPRESSION
     Dosage: 30 MG, QD
     Route: 065
  3. ABILIFY [Suspect]
     Active Substance: ARIPIPRAZOLE
     Dosage: 30 MG, QD
     Route: 065
     Dates: end: 2014

REACTIONS (10)
  - Restless legs syndrome [Unknown]
  - Injury [Unknown]
  - Transient ischaemic attack [Recovered/Resolved]
  - Emotional distress [Unknown]
  - Brain stem infarction [Unknown]
  - Gambling disorder [Recovered/Resolved]
  - Overdose [Unknown]
  - Bankruptcy [Unknown]
  - Neuropsychiatric symptoms [Unknown]
  - Economic problem [Unknown]

NARRATIVE: CASE EVENT DATE: 200905
